FAERS Safety Report 6975097-5 (Version None)
Quarter: 2010Q3

REPORT INFORMATION
  Report Type: 
  Country: None (occurrence: None)
  Receive Date: 20100910
  Receipt Date: 20090304
  Transmission Date: 20110219
  Serious: No
  Sender: FDA-Public Use
  Company Number: US-WYE-H07969009

PATIENT
  Age: 56 Year
  Sex: Female
  Weight: 64.47 kg

DRUGS (2)
  1. ADVIL PM [Suspect]
     Indication: INSOMNIA
     Dosage: 2 CAPLETS AS NEEDED
     Route: 048
     Dates: start: 20081201, end: 20090101
  2. LEVOTHYROXINE SODIUM [Concomitant]

REACTIONS (2)
  - DRUG INEFFECTIVE [None]
  - RESTLESS LEGS SYNDROME [None]
